FAERS Safety Report 9537873 (Version 1)
Quarter: 2013Q3

REPORT INFORMATION
  Report Type: Spontaneous
  Country: GB (occurrence: GB)
  Receive Date: 20130919
  Receipt Date: 20130919
  Transmission Date: 20140515
  Serious: Yes (Hospitalization)
  Sender: FDA-Public Use
  Company Number: CHNY2013GB001942

PATIENT
  Sex: 0

DRUGS (5)
  1. SCOPODERM TTS [Suspect]
     Indication: SALIVARY HYPERSECRETION
     Dosage: 3 MG, Q72H
     Route: 062
     Dates: start: 20130827, end: 20130828
  2. SIMVASTATIN [Concomitant]
  3. ASPIRIN [Concomitant]
  4. LANSOPRAZOL [Concomitant]
  5. MEMANTINE [Concomitant]

REACTIONS (4)
  - Confusional state [Recovering/Resolving]
  - Agitation [Unknown]
  - Aggression [Unknown]
  - Mobility decreased [Unknown]
